FAERS Safety Report 6243417-5 (Version None)
Quarter: 2009Q2

REPORT INFORMATION
  Report Type: 
  Country: None (occurrence: None)
  Receive Date: 20090618
  Receipt Date: 20081211
  Transmission Date: 20091009
  Serious: Yes (Other)
  Sender: FDA-Public Use
  Company Number: CIP08001608

PATIENT
  Sex: Female

DRUGS (15)
  1. ACTONEL [Suspect]
     Indication: OSTEOPOROSIS
     Dosage: 35 MG, 1/WEEK, ORAL ; 35 MG, 1/WEEK, ORAL ; 35 MG, 1/WEEK, ORAL
     Route: 048
     Dates: start: 20020901, end: 20041021
  2. ACTONEL [Suspect]
     Indication: OSTEOPOROSIS
     Dosage: 35 MG, 1/WEEK, ORAL ; 35 MG, 1/WEEK, ORAL ; 35 MG, 1/WEEK, ORAL
     Route: 048
     Dates: start: 20041101, end: 20060308
  3. ACTONEL [Suspect]
     Indication: OSTEOPOROSIS
     Dosage: 35 MG, 1/WEEK, ORAL ; 35 MG, 1/WEEK, ORAL ; 35 MG, 1/WEEK, ORAL
     Route: 048
     Dates: start: 20060908, end: 20071030
  4. BENICAR [Concomitant]
  5. LEXAPRO [Concomitant]
  6. ATIVAN [Concomitant]
  7. ZETIA [Concomitant]
  8. TRENTAL [Concomitant]
  9. PRILOSEC /00661201/ (OMEPRAZOLE) [Concomitant]
  10. ULTRACET [Concomitant]
  11. ASPIRIN [Concomitant]
  12. CALCIUM (CALCIUM) [Concomitant]
  13. PROZAC [Concomitant]
  14. ZANTAC [Concomitant]
  15. CRESTOR [Concomitant]

REACTIONS (10)
  - DENTAL CARIES [None]
  - DYSPEPSIA [None]
  - JAW DISORDER [None]
  - OSTEOMYELITIS [None]
  - OSTEONECROSIS [None]
  - PRIMARY SEQUESTRUM [None]
  - PULPITIS DENTAL [None]
  - TOOTH EXTRACTION [None]
  - TOOTH FRACTURE [None]
  - TOOTHACHE [None]
